FAERS Safety Report 14200030 (Version 1)
Quarter: 2017Q4

REPORT INFORMATION
  Report Type: Spontaneous
  Country: CA (occurrence: CA)
  Receive Date: 20171117
  Receipt Date: 20171117
  Transmission Date: 20180321
  Serious: Yes (Hospitalization)
  Sender: FDA-Public Use
  Company Number: CA-PFIZER INC-2017357069

PATIENT
  Age: 55 Year
  Sex: Female

DRUGS (2)
  1. SUTENT [Suspect]
     Active Substance: SUNITINIB MALATE
     Dosage: 50 MG FOR TWO MONTHS
     Route: 048
     Dates: start: 20170524
  2. SUTENT [Suspect]
     Active Substance: SUNITINIB MALATE
     Dosage: 25MG DAILY, (TWO WEEKS ON, 1 WEEK OFF)
     Route: 048

REACTIONS (1)
  - Malaise [Unknown]
